FAERS Safety Report 12806469 (Version 1)
Quarter: 2016Q4

REPORT INFORMATION
  Report Type: Spontaneous
  Country: US (occurrence: US)
  Receive Date: 20161004
  Receipt Date: 20161004
  Transmission Date: 20170207
  Serious: No
  Sender: FDA-Public Use
  Company Number: None

PATIENT
  Age: 56 Year
  Sex: Male
  Weight: 78.93 kg

DRUGS (3)
  1. CENTURY MEN MULTIVITAMIN FOR MEN OVER 50 (SAME AS CENTRUM SILVER) [Concomitant]
  2. BENICAR [Suspect]
     Active Substance: OLMESARTAN MEDOXOMIL
     Indication: HYPERTENSION
     Dosage: TWO 5 MG TABLS ??(APPROXMATELY  2007- 2009)
     Route: 048
     Dates: start: 2007, end: 20151214
  3. CARVEDILOL. [Concomitant]
     Active Substance: CARVEDILOL

REACTIONS (2)
  - Tachycardia [None]
  - Pruritus [None]

NARRATIVE: CASE EVENT DATE: 20140409
